FAERS Safety Report 6589425-6 (Version None)
Quarter: 2010Q1

REPORT INFORMATION
  Report Type: 
  Country: None (occurrence: None)
  Receive Date: 20100212
  Receipt Date: 20100201
  Transmission Date: 20100710
  Serious: Yes (Hospitalization, Disabling)
  Sender: FDA-Public Use
  Company Number: DSM-2010-00145

PATIENT
  Age: 86 Year
  Sex: Male

DRUGS (11)
  1. OLMESARTAN MEDOXOMIL [Suspect]
     Indication: DRUG USE FOR UNKNOWN INDICATION
     Dosage: 20 MG (20 MG, 1 IN 1 D), ORAL
     Route: 048
  2. CARDENSIEL (BISOPROLOL FUMARATE) (1.25 MILLIGRAM) (BISOPROLOL FUMARATE [Suspect]
     Indication: DRUG USE FOR UNKNOWN INDICATION
     Dosage: 1.25 MG (1.25 MG, 1 IN 1 D), ORAL
     Route: 048
  3. LYRICA [Suspect]
     Indication: DRUG USE FOR UNKNOWN INDICATION
     Dosage: 25 MG, 50 MG
     Dates: start: 20090422, end: 20090424
  4. LYRICA [Suspect]
     Indication: DRUG USE FOR UNKNOWN INDICATION
     Dosage: 25 MG, 50 MG
     Dates: start: 20090424, end: 20090425
  5. LASILIX FAIBLE (FUROSEMIDE) (20 MILLIGRAM, TABLET) (FUROSEMIDE) [Suspect]
     Indication: DRUG USE FOR UNKNOWN INDICATION
     Dosage: 20 MG (20 MG, 1 IN 1 D), ORAL
     Route: 048
  6. XANAX [Suspect]
     Indication: DRUG USE FOR UNKNOWN INDICATION
     Dosage: 0.375 MG (0.375 MG, 1 IN 1 D), ORAL
     Route: 048
  7. KARDEGIC (ACETYLSALICYLIC ACID) (75 MILLIGRAM) (ACETYLSALICYLIC ACID) [Concomitant]
  8. DAFALGAN (PARACETAMOL) (500 MILLIGRAM, CAPSULE) (PARACETAMOL) [Concomitant]
  9. PLAVIX (CLOPIDOGREL SULFATE) (75 MILLIGRAM, TABLET) (CLOPIDOGREL SULFA [Concomitant]
  10. INEXIUM (ESOMEPRAZOLE) (40 MILLIGRAM, TABLET) (ESOMEPRAZOLE) [Concomitant]
  11. BIPERIDYS (DOMPERIDONE) (TABLET) (DOMPERIDONE) [Concomitant]

REACTIONS (3)
  - DELIRIUM [None]
  - FALL [None]
  - FEMORAL NECK FRACTURE [None]
